FAERS Safety Report 21890983 (Version 1)
Quarter: 2023Q1

REPORT INFORMATION
  Report Type: Spontaneous
  Country: US (occurrence: US)
  Receive Date: 20230120
  Receipt Date: 20230120
  Transmission Date: 20230418
  Serious: No
  Sender: FDA-Public Use
  Company Number: US-009507513-2301USA003431

PATIENT
  Age: 35 Year
  Sex: Male

DRUGS (5)
  1. INTEGRILIN [Suspect]
     Active Substance: EPTIFIBATIDE
     Indication: Coronary artery thrombosis
     Dosage: UNK
     Route: 022
  2. INTEGRILIN [Suspect]
     Active Substance: EPTIFIBATIDE
     Dosage: ONCE, FOR 18 HOURS
     Route: 022
  3. ASPIRIN [Suspect]
     Active Substance: ASPIRIN
     Dosage: UNK
  4. TICAGRELOR [Suspect]
     Active Substance: TICAGRELOR
     Dosage: LOADING DOSE
  5. HEPARIN [Suspect]
     Active Substance: HEPARIN SODIUM
     Dosage: INTRAVENOUS BOLUSES
     Route: 042

REACTIONS (2)
  - Drug ineffective [Unknown]
  - Product use issue [Unknown]
